FAERS Safety Report 24351177 (Version 1)
Quarter: 2024Q3

REPORT INFORMATION
  Report Type: Spontaneous
  Country: US (occurrence: None)
  Receive Date: 20240920
  Receipt Date: 20240920
  Transmission Date: 20241017
  Serious: Yes (Hospitalization)
  Sender: Public
  Company Number: None

PATIENT
  Sex: Female

DRUGS (1)
  1. STIVARGA [Suspect]
     Active Substance: REGORAFENIB MONOHYDRATE
     Indication: Gastrointestinal stromal tumour
     Dosage: OTHER FREQUENCY : DAILY FOR 21 DAYS OF 28 DAY CYCLE;?
     Route: 048
     Dates: start: 202308

REACTIONS (2)
  - Pyrexia [None]
  - Viral infection [None]
